FAERS Safety Report 8506690-6 (Version None)
Quarter: 2012Q3

REPORT INFORMATION
  Report Type: 
  Country: None (occurrence: None)
  Receive Date: 20120712
  Receipt Date: 20120702
  Transmission Date: 20120928
  Serious: Yes (Other)
  Sender: FDA-Public Use
  Company Number: JP-NAPPMUNDI-MAG-2012-0002209

PATIENT
  Age: 28 Year
  Sex: Female

DRUGS (3)
  1. PREDNISOLONE [Concomitant]
     Dosage: UNK
  2. THEOPHYLLINE [Suspect]
     Indication: ASTHMA
     Dosage: 200 MG, BID
     Route: 048
     Dates: start: 20120526, end: 20120529
  3. ADVAIR DISKUS 100/50 [Concomitant]
     Dosage: 500 UNK, UNK
     Route: 055

REACTIONS (4)
  - DIARRHOEA [None]
  - SOMNOLENCE [None]
  - ARTHRALGIA [None]
  - MALAISE [None]
